FAERS Safety Report 6554364-3 (Version None)
Quarter: 2010Q1

REPORT INFORMATION
  Report Type: 
  Country: None (occurrence: None)
  Receive Date: 20100127
  Receipt Date: 20100111
  Transmission Date: 20100710
  Serious: Yes (Other)
  Sender: FDA-Public Use
  Company Number: B0622052A

PATIENT
  Sex: Male

DRUGS (3)
  1. CARDIOL [Suspect]
     Dosage: 25MG TWICE PER DAY
     Route: 048
     Dates: start: 20040101
  2. TAMBOCOR [Concomitant]
     Route: 065
  3. SIMVASTATIN [Concomitant]
     Route: 065

REACTIONS (4)
  - BRADYCARDIA [None]
  - DYSPNOEA [None]
  - FATIGUE [None]
  - SYNCOPE [None]
